FAERS Safety Report 24140244 (Version 2)
Quarter: 2024Q3

REPORT INFORMATION
  Report Type: Report from Study
  Country: PK (occurrence: PK)
  Receive Date: 20240726
  Receipt Date: 20240903
  Transmission Date: 20241017
  Serious: Yes (Death)
  Sender: ROCHE
  Company Number: PK-ROCHE-10000033385

PATIENT
  Age: 34 Year
  Sex: Female

DRUGS (1)
  1. RITUXIMAB [Suspect]
     Active Substance: RITUXIMAB
     Indication: Follicular lymphoma
     Dosage: FORMULATION: SOLUTION
     Route: 065
     Dates: start: 20240606, end: 20240704

REACTIONS (1)
  - Myocardial oedema [Fatal]

NARRATIVE: CASE EVENT DATE: 20240704
